FAERS Safety Report 9627965 (Version 1)
Quarter: 2013Q4

REPORT INFORMATION
  Report Type: Spontaneous
  Country: AU (occurrence: AU)
  Receive Date: 20131016
  Receipt Date: 20131016
  Transmission Date: 20140711
  Serious: Yes (Other)
  Sender: FDA-Public Use
  Company Number: PHHY2013AU113251

PATIENT
  Sex: Male

DRUGS (5)
  1. VALPROIC ACID [Suspect]
  2. ESCITALOPRAM [Suspect]
     Indication: BEHAVIOURAL AND PSYCHIATRIC SYMPTOMS OF DEMENTIA
  3. QUETIAPINE [Suspect]
     Indication: BEHAVIOURAL AND PSYCHIATRIC SYMPTOMS OF DEMENTIA
     Dosage: UNK UKN, UNK
  4. QUETIAPINE [Suspect]
     Dosage: UNK (DOSE INCREASED)
  5. MIRTAZAPINE [Suspect]

REACTIONS (5)
  - Hypernatraemia [Unknown]
  - Sedation [Unknown]
  - Hallucination, visual [Unknown]
  - Partial seizures [Unknown]
  - Convulsion [Unknown]
